FAERS Safety Report 10896777 (Version 1)
Quarter: 2015Q1

REPORT INFORMATION
  Report Type: Spontaneous
  Country: GB (occurrence: GB)
  Receive Date: 20150309
  Receipt Date: 20150309
  Transmission Date: 20150721
  Serious: Yes (Other)
  Sender: FDA-Public Use
  Company Number: GB-TEVA-545725ISR

PATIENT
  Age: 40 Year
  Sex: Female

DRUGS (1)
  1. CITALOPRAM [Suspect]
     Active Substance: CITALOPRAM HYDROBROMIDE
     Dosage: 20 MILLIGRAM DAILY;
     Route: 065

REACTIONS (7)
  - Mania [Unknown]
  - Disinhibition [Unknown]
  - Weight increased [Unknown]
  - Aggression [Unknown]
  - Insomnia [Unknown]
  - Social problem [Unknown]
  - Alcohol use [Unknown]
